FAERS Safety Report 10583753 (Version 1)
Quarter: 2014Q4

REPORT INFORMATION
  Report Type: Report from Study
  Country: FR (occurrence: None)
  Receive Date: 20141112
  Receipt Date: 20141112
  Transmission Date: 20150529
  Serious: Yes (Hospitalization)
  Sender: FDA-Public Use
  Company Number: 2014SGN01393

PATIENT
  Age: 63 Year
  Sex: Female
  Weight: 60 kg

DRUGS (28)
  1. LOPERAMIDE (LOPERAMIDE HYDROCHLORIDE) [Concomitant]
  2. ALPRAZOLAM (ALPRAZOLAM) [Concomitant]
     Active Substance: ALPRAZOLAM
  3. CARBOCISTEINE (CARBOCISTEINE) [Concomitant]
  4. VITAMIN B6 [Concomitant]
     Active Substance: PYRIDOXINE HYDROCHLORIDE
  5. VITAMIN B1 [Concomitant]
     Active Substance: THIAMINE HYDROCHLORIDE
  6. PREDNISONE (PREDNISONE) ORAL [Suspect]
     Active Substance: PREDNISONE
     Indication: ANAPLASTIC LARGE CELL LYMPHOMA T- AND NULL-CELL TYPES
     Dosage: QCYCLE
     Route: 048
     Dates: start: 20141013, end: 20141017
  7. SPASFON (PHLOROGLUCINOL) [Concomitant]
  8. GLUCOSE (GLUCOSE) [Concomitant]
  9. INNOHEP [Concomitant]
     Active Substance: TINZAPARIN SODIUM
  10. LOVENOX [Concomitant]
     Active Substance: ENOXAPARIN SODIUM
  11. DOXORUBICIN (DOXORUBICIN) INJECTION [Suspect]
     Active Substance: DOXORUBICIN
     Indication: ANAPLASTIC LARGE CELL LYMPHOMA T- AND NULL-CELL TYPES
     Dosage: Q21D
     Route: 042
     Dates: start: 20141013, end: 20141013
  12. SMECTA (DIOSMECTITE) [Concomitant]
  13. CLAFORAN (CEFOTAXIME SODIUM) [Concomitant]
  14. OTHER NUTRIENTS [Concomitant]
  15. OTHER RESPIRATORY SYSTEM PRODUCTS [Concomitant]
     Active Substance: UNSPECIFIED INGREDIENT
  16. KESTIN (EBASTINE) [Concomitant]
  17. NIVESTIM (FILGRASTIM) [Concomitant]
  18. TRAMADOL (TRAMADOL HYDROCHLORIDE) [Suspect]
     Active Substance: TRAMADOL HYDROCHLORIDE
  19. SODIUM CHLORIDE (SODIUM CHLORIDE) [Concomitant]
     Active Substance: SODIUM CHLORIDE
  20. CERNEVIT (ASCORBIC ACID, BIOTIN, COCARBOXYLASE TETRAHYDRATE, COLECALCIFEROL, CYANOCOBALAMIN, DEXPANTHENOL, FOLIC ACID, NICOTINAMIDE, PYRIDOXINE HYDROCHLORIDE, RETINOL PALMITATE, RIBOFLAVIN SODIUM PHOSPHATE, TOCOPHEROL) [Concomitant]
  21. INSULIN (INSULIN) [Concomitant]
     Active Substance: INSULIN NOS
  22. DECAN (DEXAMETHASONE) [Concomitant]
  23. STUDY DRUG [Suspect]
     Active Substance: INVESTIGATIONAL PRODUCT
     Indication: ANAPLASTIC LARGE CELL LYMPHOMA T- AND NULL-CELL TYPES
     Dosage: BLINDED, INFORMATION WITHELD
     Dates: start: 20141013, end: 20141013
  24. CYCLOPHOSPHAMIDE (CYCLOPHOSPHAMIDE) INJECTION [Suspect]
     Active Substance: CYCLOPHOSPHAMIDE
     Indication: ANAPLASTIC LARGE CELL LYMPHOMA T- AND NULL-CELL TYPES
     Dosage: Q21D
     Route: 042
     Dates: start: 20141013, end: 20141013
  25. PREDNISONE (PREDNISONE ACETATE) [Concomitant]
  26. ESOMEPRAZOLE (ESOMEPRAZOLE) [Concomitant]
     Active Substance: ESOMEPRAZOLE
  27. DAFALGAN (PARACETAMOL) [Concomitant]
  28. FOLIC ACID (FOLIC ACID) [Concomitant]
     Active Substance: FOLIC ACID

REACTIONS (4)
  - Blood creatinine decreased [None]
  - Hypokalaemia [None]
  - Blood calcium decreased [None]
  - Blood phosphorus decreased [None]

NARRATIVE: CASE EVENT DATE: 20141023
